FAERS Safety Report 8695495 (Version 2)
Quarter: 2012Q4

REPORT INFORMATION
  Report Type: 
  Country: US (occurrence: US)
  Receive Date: 20120731
  Receipt Date: 20120905
  Transmission Date: 20130627
  Serious: Yes (Hospitalization)
  Sender: FDA-Public Use
  Company Number: US-B.I. PHARMACEUTICALS,INC./RIDGEFIELD-2012-BP-16451BP

PATIENT
  Age: 82 Year
  Sex: Male
  Weight: 85.27 kg

DRUGS (6)
  1. PRADAXA [Suspect]
     Indication: ATRIAL FIBRILLATION
     Dates: start: 20120515
  2. CARVEDILOL [Concomitant]
     Dosage: 50 mg
     Route: 048
  3. DIGOXIN [Concomitant]
     Dosage: 25 mg
     Route: 048
  4. AMLODIPINE [Concomitant]
     Dosage: 5 mg
     Route: 048
  5. SIMVASTATIN [Concomitant]
     Dosage: 20 mg
     Route: 048
  6. FUROSEMIDE [Concomitant]
     Dosage: 20 mg
     Route: 048

REACTIONS (1)
  - Myocardial infarction [Recovered/Resolved]
